FAERS Safety Report 5739396-7 (Version None)
Quarter: 2008Q2

REPORT INFORMATION
  Report Type: 
  Country: None (occurrence: None)
  Receive Date: 20080515
  Receipt Date: 20080506
  Transmission Date: 20081010
  Serious: Yes (Hospitalization)
  Sender: FDA-Public Use
  Company Number: SE-ROCHE-562981

PATIENT

DRUGS (2)
  1. XELODA [Suspect]
     Route: 065
     Dates: start: 20080429
  2. OXALIPLATIN [Suspect]
     Route: 065

REACTIONS (2)
  - CHILLS [None]
  - PYREXIA [None]
